FAERS Safety Report 18678779 (Version 1)
Quarter: 2020Q4

REPORT INFORMATION
  Report Type: Spontaneous
  Country: US (occurrence: US)
  Receive Date: 20201229
  Receipt Date: 20201229
  Transmission Date: 20210114
  Serious: Yes (Other)
  Sender: FDA-Public Use
  Company Number: US-ASTRAZENECA-2020SF73137

PATIENT
  Age: 469 Month
  Sex: Male
  Weight: 80.7 kg

DRUGS (2)
  1. BREZTRI [Suspect]
     Active Substance: BUDESONIDE\FORMOTEROL\GLYCOPYRRONIUM
     Indication: ASTHMA
     Dosage: 160 MCG, TWO PUFFS TWICE EACH DAY
     Route: 055
     Dates: start: 202010
  2. SYMBICORT [Suspect]
     Active Substance: BUDESONIDE\FORMOTEROL FUMARATE DIHYDRATE
     Indication: ASTHMA
     Dosage: 160 MCG, TWO PUFFS TWICE EACH DAY
     Route: 055
     Dates: start: 201810, end: 202010

REACTIONS (10)
  - Pulmonary oedema [Recovering/Resolving]
  - Device malfunction [Unknown]
  - Product dose omission issue [Unknown]
  - Intentional device misuse [Unknown]
  - Off label use [Not Recovered/Not Resolved]
  - Device issue [Unknown]
  - Drug delivery system issue [Unknown]
  - Drug ineffective [Recovering/Resolving]
  - Cough [Recovering/Resolving]
  - Wrong technique in device usage process [Unknown]

NARRATIVE: CASE EVENT DATE: 201810
